FAERS Safety Report 6077793-3 (Version None)
Quarter: 2009Q1

REPORT INFORMATION
  Report Type: 
  Country: None (occurrence: None)
  Receive Date: 20090213
  Receipt Date: 20090203
  Transmission Date: 20090719
  Serious: Yes (Hospitalization, Other)
  Sender: FDA-Public Use
  Company Number: US-PFIZER INC-2009163800

PATIENT
  Sex: Female
  Weight: 61.688 kg

DRUGS (2)
  1. NARDIL [Suspect]
     Indication: MAJOR DEPRESSION
     Dosage: 15 MG, 3X/DAY
     Route: 048
     Dates: start: 19830101
  2. NARDIL [Suspect]
     Indication: PANIC ATTACK

REACTIONS (6)
  - BLINDNESS [None]
  - CHEST DISCOMFORT [None]
  - HEADACHE [None]
  - HYPERHIDROSIS [None]
  - PALPITATIONS [None]
  - SURGERY [None]
